FAERS Safety Report 9220122 (Version 1)
Quarter: 2013Q2

REPORT INFORMATION
  Report Type: Spontaneous
  Country: US (occurrence: None)
  Receive Date: 20130408
  Receipt Date: 20130408
  Transmission Date: 20140414
  Serious: Yes (Hospitalization)
  Sender: FDA-Public Use
  Company Number: None

PATIENT
  Age: 40 Year
  Sex: Female
  Weight: 59.42 kg

DRUGS (1)
  1. FLAGYL [Suspect]
     Indication: GASTROENTERITIS CLOSTRIDIAL
     Dosage: 1 DOSE TWICE A DAY PO
     Route: 048
     Dates: start: 20130404, end: 20130405

REACTIONS (1)
  - Supraventricular tachycardia [None]
